FAERS Safety Report 14670645 (Version 1)
Quarter: 2018Q1

REPORT INFORMATION
  Report Type: Spontaneous
  Country: GB (occurrence: GB)
  Receive Date: 20180322
  Receipt Date: 20180322
  Transmission Date: 20180509
  Serious: Yes (Other)
  Sender: FDA-Public Use
  Company Number: GB-TEVA-2018-GB-873686

PATIENT
  Age: 67 Year
  Sex: Male
  Weight: 113 kg

DRUGS (5)
  1. TERAZOSIN [Suspect]
     Active Substance: TERAZOSIN\TERAZOSIN HYDROCHLORIDE
     Indication: HYPERTENSION
     Route: 048
  2. BENDROFLUMETHIAZIDE [Concomitant]
     Active Substance: BENDROFLUMETHIAZIDE
     Route: 065
  3. NOVORAPID [Concomitant]
     Active Substance: INSULIN ASPART
     Route: 065
  4. LACIDIPINE [Concomitant]
     Active Substance: LACIDIPINE
     Dosage: 4MG AND 2MG
     Route: 065
  5. CANDESARTAN. [Concomitant]
     Active Substance: CANDESARTAN
     Route: 065

REACTIONS (1)
  - Diabetes mellitus inadequate control [Recovering/Resolving]
